FAERS Safety Report 7860448-X (Version None)
Quarter: 2011Q4

REPORT INFORMATION
  Report Type: 
  Country: None (occurrence: None)
  Receive Date: 20111027
  Receipt Date: 20111021
  Transmission Date: 20120403
  Serious: Yes (Other)
  Sender: FDA-Public Use
  Company Number: PHHY2011US61153

PATIENT
  Sex: Male

DRUGS (4)
  1. EXJADE [Suspect]
     Indication: IRON METABOLISM DISORDER
     Dosage: 1750 MG, DAILY
     Route: 048
     Dates: start: 20110616, end: 20111021
  2. STEROIDS NOS [Concomitant]
     Dosage: UNK
     Route: 065
  3. CHEMOTHERAPEUTICS NOS [Concomitant]
     Dosage: UNK UKN, UNK
     Route: 065
  4. SUTENT [Concomitant]
     Dosage: UNK
     Route: 065

REACTIONS (10)
  - JAUNDICE [None]
  - DIARRHOEA [None]
  - WEIGHT INCREASED [None]
  - ABDOMINAL DISTENSION [None]
  - FATIGUE [None]
  - JOINT SWELLING [None]
  - OEDEMA [None]
  - OEDEMA PERIPHERAL [None]
  - INSOMNIA [None]
  - ABDOMINAL DISCOMFORT [None]
